FAERS Safety Report 20525517 (Version 1)
Quarter: 2022Q1

REPORT INFORMATION
  Report Type: Spontaneous
  Country: JP (occurrence: JP)
  Receive Date: 20220228
  Receipt Date: 20220228
  Transmission Date: 20220424
  Serious: Yes (Other)
  Sender: FDA-Public Use
  Company Number: JP-GLAXOSMITHKLINE-JP2022JPN031718

PATIENT
  Age: 46 Year
  Sex: Female

DRUGS (3)
  1. VALTREX [Suspect]
     Active Substance: VALACYCLOVIR HYDROCHLORIDE
     Indication: Herpes ophthalmic
     Dosage: UNK
  2. ACYCLOVIR [Suspect]
     Active Substance: ACYCLOVIR
     Indication: Ophthalmic herpes simplex
     Dosage: UNK
  3. CYCLOSPORINE [Suspect]
     Active Substance: CYCLOSPORINE
     Dosage: UNK

REACTIONS (7)
  - Atopic keratoconjunctivitis [Unknown]
  - Ophthalmic herpes simplex [Unknown]
  - Symptom recurrence [Unknown]
  - Corneal lesion [Unknown]
  - Conjunctival hyperaemia [Unknown]
  - Corneal deposits [Unknown]
  - Dermatitis atopic [Unknown]
